FAERS Safety Report 6272166-2 (Version None)
Quarter: 2009Q3

REPORT INFORMATION
  Report Type: 
  Country: None (occurrence: None)
  Receive Date: 20090717
  Receipt Date: 20090713
  Transmission Date: 20100115
  Serious: Yes (Hospitalization)
  Sender: FDA-Public Use
  Company Number: US-JNJFOC-20090703300

PATIENT
  Age: 9 Year
  Sex: Male
  Weight: 29.94 kg

DRUGS (4)
  1. REMICADE [Suspect]
     Dosage: 3RD DOSE
     Route: 042
  2. REMICADE [Suspect]
     Indication: ARTHRITIS
     Route: 042
  3. REMICADE [Suspect]
     Indication: POLYCHONDRITIS
     Route: 042
  4. CYTOXAN [Concomitant]

REACTIONS (9)
  - ARTHRITIS [None]
  - COMPLEX PARTIAL SEIZURES [None]
  - CORONARY ARTERY DISEASE [None]
  - HYPERTENSION [None]
  - MONONEUROPATHY MULTIPLEX [None]
  - POLYARTERITIS NODOSA [None]
  - POLYCHONDRITIS [None]
  - RESPIRATION ABNORMAL [None]
  - VASCULITIS [None]
